FAERS Safety Report 21192206 (Version 2)
Quarter: 2022Q3

REPORT INFORMATION
  Report Type: Spontaneous
  Country: US (occurrence: US)
  Receive Date: 20220809
  Receipt Date: 20220928
  Transmission Date: 20221026
  Serious: Yes (Other)
  Sender: FDA-Public Use
  Company Number: US-MALLINCKRODT-T202204046

PATIENT
  Sex: Female
  Weight: 91 kg

DRUGS (1)
  1. H.P. ACTHAR [Suspect]
     Active Substance: CORTICOTROPIN
     Indication: Ankylosing spondylitis
     Dosage: 1 MILLILITER (80 UNITS), TWO TIMES A WEEK
     Route: 058
     Dates: start: 202110

REACTIONS (3)
  - Arthralgia [Unknown]
  - Chest discomfort [Unknown]
  - Muscle spasms [Unknown]
